FAERS Safety Report 4389719-9 (Version None)
Quarter: 2004Q2

REPORT INFORMATION
  Report Type: 
  Country: None (occurrence: None)
  Receive Date: 20040629
  Receipt Date: 20030908
  Transmission Date: 20050107
  Serious: Yes (Other)
  Sender: FDA-Public Use
  Company Number: US-JNJFOC-20030801175

PATIENT
  Age: 38 Year
  Sex: Male
  Weight: 83.6887 kg

DRUGS (10)
  1. DURAGESIC [Suspect]
     Indication: PAIN
     Dosage: 25 UG/HR, 1 IN 72 HOUR, TRANSDERMAL; SEE IMAGE
     Route: 062
     Dates: start: 20011201, end: 20030301
  2. DURAGESIC [Suspect]
     Indication: PAIN
     Dosage: 25 UG/HR, 1 IN 72 HOUR, TRANSDERMAL; SEE IMAGE
     Route: 062
     Dates: start: 20030301, end: 20030401
  3. DURAGESIC [Suspect]
     Indication: PAIN
     Dosage: 25 UG/HR, 1 IN 72 HOUR, TRANSDERMAL; SEE IMAGE
     Route: 062
     Dates: start: 20030401, end: 20030603
  4. DURAGESIC [Suspect]
     Indication: PAIN
     Dosage: 25 UG/HR, 1 IN 72 HOUR, TRANSDERMAL; SEE IMAGE
     Route: 062
     Dates: start: 20011101
  5. DURAGESIC [Suspect]
     Indication: PAIN
     Dosage: 25 UG/HR, 1 IN 72 HOUR, TRANSDERMAL; SEE IMAGE
     Route: 062
     Dates: start: 20030605
  6. REGLAN [Concomitant]
  7. NORTRIPTYLINE HCL [Concomitant]
  8. REMERON [Concomitant]
  9. NEURONTIN [Concomitant]
  10. EFFEXOR [Concomitant]

REACTIONS (7)
  - APPLICATION SITE REACTION [None]
  - COUGH [None]
  - CYANOSIS [None]
  - DRUG WITHDRAWAL SYNDROME [None]
  - HYPOPNOEA [None]
  - LOSS OF CONSCIOUSNESS [None]
  - SYNCOPE [None]
